FAERS Safety Report 24014499 (Version 1)
Quarter: 2024Q2

REPORT INFORMATION
  Report Type: Spontaneous
  Country: DE (occurrence: DE)
  Receive Date: 20240626
  Receipt Date: 20240626
  Transmission Date: 20240715
  Serious: Yes (Other)
  Sender: FDA-Public Use
  Company Number: DE-SUN PHARMACEUTICAL INDUSTRIES LTD-2024RR-453599

PATIENT
  Sex: Male

DRUGS (1)
  1. CIPROFLOXACIN HYDROCHLORIDE [Suspect]
     Active Substance: CIPROFLOXACIN HYDROCHLORIDE
     Indication: Diverticulitis
     Dosage: 500 MILLIGRAM, UNK
     Route: 065
     Dates: start: 2009

REACTIONS (19)
  - Toxicity to various agents [Unknown]
  - Arthralgia [Unknown]
  - Muscular weakness [Unknown]
  - Myalgia [Unknown]
  - Muscle spasms [Unknown]
  - Muscle twitching [Unknown]
  - Nervous system disorder [Unknown]
  - Skin burning sensation [Unknown]
  - Neuropathy peripheral [Unknown]
  - Visual impairment [Unknown]
  - Depression [Unknown]
  - Fatigue [Unknown]
  - Hypertension [Unknown]
  - Vertigo [Unknown]
  - Loss of libido [Unknown]
  - Phantom limb syndrome [Unknown]
  - Memory impairment [Unknown]
  - Mental impairment [Unknown]
  - Liver function test abnormal [Unknown]
